FAERS Safety Report 4993551-2 (Version None)
Quarter: 2006Q2

REPORT INFORMATION
  Report Type: 
  Country: None (occurrence: None)
  Receive Date: 20060503
  Receipt Date: 20060503
  Transmission Date: 20061013
  Serious: Yes (Hospitalization)
  Sender: FDA-Public Use
  Company Number: None

PATIENT
  Age: 81 Year
  Sex: Male
  Weight: 89 kg

DRUGS (1)
  1. OMNIPAQUE 100 CC [Suspect]
     Indication: COMPUTERISED TOMOGRAM
     Dates: start: 20051208

REACTIONS (3)
  - DIALYSIS [None]
  - NEPHROPATHY [None]
  - RENAL FAILURE ACUTE [None]
